FAERS Safety Report 8170210-9 (Version None)
Quarter: 2012Q1

REPORT INFORMATION
  Report Type: 
  Country: None (occurrence: None)
  Receive Date: 20120228
  Receipt Date: 20120217
  Transmission Date: 20120608
  Serious: Yes (Other)
  Sender: FDA-Public Use
  Company Number: CA-JNJFOC-20120209988

PATIENT
  Sex: Female
  Weight: 61 kg

DRUGS (1)
  1. REMICADE [Suspect]
     Indication: CROHN'S DISEASE
     Route: 042
     Dates: start: 20110501

REACTIONS (5)
  - MUSCLE SPASMS [None]
  - PARAESTHESIA [None]
  - DISTURBANCE IN ATTENTION [None]
  - VISUAL FIELD DEFECT [None]
  - AFFECT LABILITY [None]
